FAERS Safety Report 25080107 (Version 2)
Quarter: 2025Q2

REPORT INFORMATION
  Report Type: Spontaneous
  Country: JP (occurrence: JP)
  Receive Date: 20250314
  Receipt Date: 20250516
  Transmission Date: 20250717
  Serious: Yes (Other)
  Sender: BRISTOL-MYERS SQUIBB COMPANY
  Company Number: JP-BRISTOL-MYERS SQUIBB COMPANY-2025-037368

PATIENT
  Age: 3 Year
  Sex: Female

DRUGS (4)
  1. VIDAZA [Suspect]
     Active Substance: AZACITIDINE
     Indication: Juvenile chronic myelomonocytic leukaemia
     Route: 042
  2. CYTARABINE [Suspect]
     Active Substance: CYTARABINE
     Indication: Juvenile chronic myelomonocytic leukaemia
     Route: 042
  3. ETOPOSIDE [Concomitant]
     Active Substance: ETOPOSIDE
     Indication: Juvenile chronic myelomonocytic leukaemia
  4. FLUDARA [Concomitant]
     Active Substance: FLUDARABINE PHOSPHATE
     Indication: Juvenile chronic myelomonocytic leukaemia

REACTIONS (4)
  - Splenomegaly [Unknown]
  - BK virus infection [Unknown]
  - Myelosuppression [Unknown]
  - Cystitis haemorrhagic [Unknown]
